FAERS Safety Report 20638661 (Version 1)
Quarter: 2022Q1

REPORT INFORMATION
  Report Type: Spontaneous
  Country: CN (occurrence: CN)
  Receive Date: 20220325
  Receipt Date: 20220325
  Transmission Date: 20220423
  Serious: Yes (Other)
  Sender: FDA-Public Use
  Company Number: CN-PFIZER INC-202200433942

PATIENT
  Age: 12 Year
  Sex: Male
  Weight: 43.2 kg

DRUGS (3)
  1. CYTARABINE [Suspect]
     Active Substance: CYTARABINE
     Indication: Acute lymphocytic leukaemia
     Dosage: 0.07 G, 2X/DAY
     Route: 058
     Dates: start: 20220311, end: 20220317
  2. CYTARABINE [Suspect]
     Active Substance: CYTARABINE
     Dosage: 0.035 G, 1X/DAY
     Route: 037
     Dates: start: 20220311, end: 20220311
  3. CYCLOPHOSPHAMIDE [Suspect]
     Active Substance: CYCLOPHOSPHAMIDE
     Indication: Acute lymphocytic leukaemia
     Dosage: 1400 MG, 1X/DAY
     Route: 041
     Dates: start: 20220311, end: 20220311

REACTIONS (9)
  - Nausea [Recovering/Resolving]
  - Vomiting [Recovering/Resolving]
  - Diarrhoea [Recovering/Resolving]
  - White blood cells stool positive [Recovering/Resolving]
  - Occult blood positive [Recovering/Resolving]
  - Clostridium test positive [Recovering/Resolving]
  - Gastrointestinal injury [Recovering/Resolving]
  - Infection [Recovering/Resolving]
  - Klebsiella test positive [Recovering/Resolving]

NARRATIVE: CASE EVENT DATE: 20220311
